FAERS Safety Report 8136527-9 (Version None)
Quarter: 2012Q1

REPORT INFORMATION
  Report Type: 
  Country: None (occurrence: None)
  Receive Date: 20120214
  Receipt Date: 20120202
  Transmission Date: 20120608
  Serious: Yes (Other)
  Sender: FDA-Public Use
  Company Number: PHHY2012CA011045

PATIENT
  Sex: Male

DRUGS (2)
  1. PAMIDRONATE DISODIUM [Suspect]
     Indication: BACK PAIN
     Dosage: 1 MEQ/KG, PAR DAY FOR EACH OF 3 DAYS EVERY 4 MONTHS
     Route: 042
  2. GLUCOCORTICOIDS [Concomitant]

REACTIONS (1)
  - SPINAL FRACTURE [None]
